FAERS Safety Report 7206261-8 (Version None)
Quarter: 2011Q1

REPORT INFORMATION
  Report Type: 
  Country: None (occurrence: None)
  Receive Date: 20110103
  Receipt Date: 20101221
  Transmission Date: 20110831
  Serious: Yes (Hospitalization, Other)
  Sender: FDA-Public Use
  Company Number: PHHY2010PT86764

PATIENT
  Age: 65 Year
  Sex: Male

DRUGS (2)
  1. VOLTAREN [Suspect]
     Dosage: UNK
     Route: 030
     Dates: start: 20090820
  2. RELMUS [Suspect]
     Dosage: UNK
     Route: 030
     Dates: start: 20090820

REACTIONS (5)
  - LARYNGEAL OEDEMA [None]
  - ABDOMINAL DISCOMFORT [None]
  - WHEEZING [None]
  - PRURITUS [None]
  - URTICARIA [None]
